FAERS Safety Report 23248661 (Version 3)
Quarter: 2024Q1

REPORT INFORMATION
  Report Type: Spontaneous
  Country: FR (occurrence: FR)
  Receive Date: 20231201
  Receipt Date: 20240319
  Transmission Date: 20240410
  Serious: Yes (Hospitalization, Other)
  Sender: FDA-Public Use
  Company Number: None

PATIENT

DRUGS (24)
  1. IBUPROFEN [Suspect]
     Active Substance: IBUPROFEN
     Indication: Headache
     Dosage: 1200 MG, QD (400 MG X3/D)
     Route: 048
     Dates: start: 20230930, end: 20231005
  2. OBINUTUZUMAB [Suspect]
     Active Substance: OBINUTUZUMAB
     Indication: Systemic lupus erythematosus
     Dosage: 1000 MG, 1 TOTAL
     Route: 042
     Dates: start: 20230426, end: 20230426
  3. OBINUTUZUMAB [Suspect]
     Active Substance: OBINUTUZUMAB
     Dosage: 1000 MG, 1 TOTAL (D1, THEN D15 16/05/2023)
     Route: 042
     Dates: start: 20230516, end: 20230516
  4. CELLCEPT [Suspect]
     Active Substance: MYCOPHENOLATE MOFETIL
     Indication: Systemic lupus erythematosus
     Dosage: 2500 MG, QD (1G-500MG-1G)
     Route: 048
     Dates: start: 202103, end: 20231011
  5. BACTRIM [Suspect]
     Active Substance: SULFAMETHOXAZOLE\TRIMETHOPRIM
     Indication: Systemic lupus erythematosus
     Dosage: 1 DF, QD
     Route: 048
     Dates: start: 20230426, end: 20231011
  6. BACTRIM [Suspect]
     Active Substance: SULFAMETHOXAZOLE\TRIMETHOPRIM
     Indication: Neutropenia
     Dosage: 1 IU, QD
     Route: 048
     Dates: start: 20230426, end: 20231011
  7. METHYLPREDNISOLONE [Suspect]
     Active Substance: METHYLPREDNISOLONE
     Indication: Product used for unknown indication
     Dosage: 500 MG
     Route: 042
     Dates: start: 20230426, end: 20230426
  8. METHYLPREDNISOLONE [Suspect]
     Active Substance: METHYLPREDNISOLONE
     Dosage: 500 MG
     Route: 042
     Dates: start: 20230427, end: 20230427
  9. OBINUTUZUMAB [Suspect]
     Active Substance: OBINUTUZUMAB
     Indication: Lupus nephritis
     Dosage: 1000 MG (D1, THEN D15 16/05/2023)
     Route: 042
     Dates: start: 20230426, end: 20230516
  10. OBINUTUZUMAB [Suspect]
     Active Substance: OBINUTUZUMAB
     Indication: Systemic lupus erythematosus
  11. MYCOPHENOLATE MOFETIL [Suspect]
     Active Substance: MYCOPHENOLATE MOFETIL
     Indication: Lupus nephritis
     Dosage: 2500 MG (1000 MG IN THE MORNING, 500 MG AT NOON AND 1000 MG IN THE EVENING)
     Route: 048
     Dates: start: 20210408, end: 20231011
  12. MYCOPHENOLATE MOFETIL [Suspect]
     Active Substance: MYCOPHENOLATE MOFETIL
     Indication: Systemic lupus erythematosus
     Dosage: 2500 MG, QD (1G-500MG-1G )
     Route: 048
     Dates: start: 202103, end: 20231011
  13. SOLU-MEDROL [Suspect]
     Active Substance: METHYLPREDNISOLONE SODIUM SUCCINATE
     Indication: Product used for unknown indication
     Dosage: UNK
     Route: 042
     Dates: start: 20230516, end: 20230516
  14. IBUPROFEN [Suspect]
     Active Substance: IBUPROFEN
     Indication: Sinus pain
     Dosage: 400 MG, TID
     Route: 048
     Dates: start: 20230930, end: 20231005
  15. LEVOFLOXACIN [Concomitant]
     Active Substance: LEVOFLOXACIN
     Indication: Sinusitis
     Dosage: 500 MG
     Dates: start: 20231006, end: 20231011
  16. DOLIPRANE [Concomitant]
     Active Substance: ACETAMINOPHEN
     Indication: Headache
     Dosage: 4 G
     Dates: start: 20140205
  17. RENITEC [Concomitant]
     Indication: Systemic lupus erythematosus
     Dosage: 20 MG, QD(1 TABLET PER DAY IN THE MORNING   )
     Dates: start: 20210408
  18. LOVENOX [Concomitant]
     Active Substance: ENOXAPARIN SODIUM
     Indication: Product used for unknown indication
     Dosage: 4000 IU
     Dates: start: 20231013, end: 20231017
  19. CALTRATE (CALCIUM CARBONATE + VITAMIN D3) [Concomitant]
     Indication: Osteoporosis
     Dosage: UNK
     Dates: start: 20200316
  20. PREDNISONE [Concomitant]
     Active Substance: PREDNISONE
     Indication: Product used for unknown indication
     Dosage: 5 MG, QD (5 MG IN THE MORNING)
     Dates: start: 20210719
  21. SPASFON [Concomitant]
     Indication: Abdominal pain
     Dosage: UNK
     Dates: start: 20200724
  22. EUPANTOL [Concomitant]
     Active Substance: PANTOPRAZOLE SODIUM
     Indication: Product used for unknown indication
     Dosage: 20 MG
     Dates: start: 20160125, end: 20231011
  23. SYMBICORT [Concomitant]
     Active Substance: BUDESONIDE\FORMOTEROL FUMARATE DIHYDRATE
     Indication: Product used for unknown indication
     Dosage: 200 IU (1 PUFF PER DAY)
     Dates: start: 20131119
  24. PLAQUENIL [Concomitant]
     Active Substance: HYDROXYCHLOROQUINE SULFATE
     Indication: Product used for unknown indication
     Dosage: 400 MG (2 TABLETS IN THE EVENING)
     Dates: start: 20200128

REACTIONS (2)
  - Agranulocytosis [Recovered/Resolved]
  - Pyrexia [Recovered/Resolved]

NARRATIVE: CASE EVENT DATE: 20231011
